FAERS Safety Report 4980948-X (Version None)
Quarter: 2006Q2

REPORT INFORMATION
  Report Type: 
  Country: None (occurrence: None)
  Receive Date: 20060424
  Receipt Date: 20060202
  Transmission Date: 20061013
  Serious: Yes (Hospitalization, Other)
  Sender: FDA-Public Use
  Company Number: US-MERCK-0602USA01667

PATIENT
  Age: 54 Year
  Sex: Male
  Weight: 108 kg

DRUGS (6)
  1. VIOXX [Suspect]
     Indication: ARTHRITIS
     Route: 048
     Dates: start: 20000307, end: 20020711
  2. VIOXX [Suspect]
     Route: 048
     Dates: end: 20030225
  3. VIOXX [Suspect]
     Indication: BACK PAIN
     Route: 048
     Dates: start: 20000307, end: 20020711
  4. VIOXX [Suspect]
     Route: 048
     Dates: end: 20030225
  5. ACETAMINOPHEN AND HYDROCODONE BITARTRATE [Concomitant]
     Route: 065
  6. QUININE SULFATE [Concomitant]
     Route: 065

REACTIONS (10)
  - ANGINA PECTORIS [None]
  - ARTHROPATHY [None]
  - BLOOD POTASSIUM INCREASED [None]
  - BURSITIS [None]
  - CEREBRAL INFARCTION [None]
  - DYSPNOEA [None]
  - HYPERHIDROSIS [None]
  - MYOCARDIAL INFARCTION [None]
  - OVERDOSE [None]
  - RENAL FAILURE [None]
